FAERS Safety Report 14991048 (Version 1)
Quarter: 2018Q2

REPORT INFORMATION
  Report Type: Spontaneous
  Country: DE (occurrence: DE)
  Receive Date: 20180608
  Receipt Date: 20180608
  Transmission Date: 20180711
  Serious: Yes (Hospitalization, Disabling)
  Sender: FDA-Public Use
  Company Number: DE-TEVA-2018-DE-902905

PATIENT
  Age: 80 Year
  Sex: Male

DRUGS (10)
  1. METOPROLOL. [Interacting]
     Active Substance: METOPROLOL
     Dosage: 23.75 MILLIGRAM DAILY;
     Route: 065
  2. PANTOPRAZOL [Concomitant]
     Active Substance: PANTOPRAZOLE SODIUM
     Dosage: 40 MILLIGRAM DAILY;
  3. CLOPIDOGREL [Concomitant]
     Active Substance: CLOPIDOGREL BISULFATE
     Dosage: 75 MILLIGRAM DAILY;
  4. SIMVASTATIN. [Concomitant]
     Active Substance: SIMVASTATIN
     Dosage: 20 MILLIGRAM DAILY;
  5. TROSPIUM [Concomitant]
     Active Substance: TROSPIUM
     Dosage: 5 MILLIGRAM DAILY;
  6. TAMSULOSIN [Concomitant]
     Active Substance: TAMSULOSIN
     Dosage: .4 MILLIGRAM DAILY;
  7. TORASEMIDE [Interacting]
     Active Substance: TORSEMIDE
     Dosage: 5 MILLIGRAM DAILY;
     Route: 065
  8. AMIODARONE [Interacting]
     Active Substance: AMIODARONE
     Dosage: 200 MILLIGRAM DAILY;
     Route: 065
  9. NATRIUMHYDROGENCARBONAT [Concomitant]
     Active Substance: SODIUM BICARBONATE
     Dosage: 300 MILLIGRAM DAILY;
  10. RAMIPRIL. [Suspect]
     Active Substance: RAMIPRIL
     Dosage: 25 MILLIGRAM DAILY;
     Route: 065

REACTIONS (5)
  - Arteriosclerotic gangrene [Unknown]
  - Pain [Unknown]
  - Arterial occlusive disease [Unknown]
  - Labelled drug-drug interaction medication error [Unknown]
  - Drug prescribing error [Unknown]
